FAERS Safety Report 4572959-3 (Version None)
Quarter: 2005Q1

REPORT INFORMATION
  Report Type: 
  Country: None (occurrence: None)
  Receive Date: 20050203
  Receipt Date: 20050125
  Transmission Date: 20050727
  Serious: Yes (Life-Threatening)
  Sender: FDA-Public Use
  Company Number: 2003JP007517

PATIENT
  Age: 83 Year
  Sex: Female
  Weight: 39.4 kg

DRUGS (14)
  1. TACROLIMUS CAPSULES (TACROLIMUS CAPSULES) [Suspect]
     Indication: MYASTHENIA GRAVIS
     Dosage: 3.00 MG, ORAL; 3.00 MG, ORAL; 1.50 MG, ORAL; 1.20 MG, ORAL
     Route: 048
     Dates: start: 20020829, end: 20020901
  2. TACROLIMUS CAPSULES (TACROLIMUS CAPSULES) [Suspect]
     Indication: MYASTHENIA GRAVIS
     Dosage: 3.00 MG, ORAL; 3.00 MG, ORAL; 1.50 MG, ORAL; 1.20 MG, ORAL
     Route: 048
     Dates: start: 20020903, end: 20020904
  3. TACROLIMUS CAPSULES (TACROLIMUS CAPSULES) [Suspect]
     Indication: MYASTHENIA GRAVIS
     Dosage: 3.00 MG, ORAL; 3.00 MG, ORAL; 1.50 MG, ORAL; 1.20 MG, ORAL
     Route: 048
     Dates: start: 20020921, end: 20021223
  4. TACROLIMUS CAPSULES (TACROLIMUS CAPSULES) [Suspect]
     Indication: MYASTHENIA GRAVIS
     Dosage: 3.00 MG, ORAL; 3.00 MG, ORAL; 1.50 MG, ORAL; 1.20 MG, ORAL
     Route: 048
     Dates: start: 20021224
  5. MESTINON (PYRIDOSTIGMINE BROMIDE) TABLET [Concomitant]
  6. WARFARIN (WARFARIN)TABLET [Concomitant]
  7. PARAMIDIN (BUCOLOME) CAPSULE [Concomitant]
  8. DIART (AZOSEMIDE) TABLET [Concomitant]
  9. HERBESSOR R (DILTIAZEM HYDROCHLORIDE) CAPSULE [Concomitant]
  10. SEPAMIT CAPSULE [Concomitant]
  11. GRANDAXIN (TOFISOPAM) [Concomitant]
  12. PRAVASTATIN [Concomitant]
  13. NITRODERM [Concomitant]
  14. BAYASPIRIN TABLET [Concomitant]

REACTIONS (6)
  - BLOOD CREATINE PHOSPHOKINASE INCREASED [None]
  - CHOLINERGIC SYNDROME [None]
  - CONDITION AGGRAVATED [None]
  - ELECTROCARDIOGRAM ST-T CHANGE [None]
  - ELECTROCARDIOGRAM T WAVE INVERSION [None]
  - MYASTHENIA GRAVIS CRISIS [None]
